FAERS Safety Report 16358866 (Version 5)
Quarter: 2019Q4

REPORT INFORMATION
  Report Type: Spontaneous
  Country: US (occurrence: US)
  Receive Date: 20190527
  Receipt Date: 20191218
  Transmission Date: 20200122
  Serious: Yes (Life-Threatening, Other)
  Sender: FDA-Public Use
  Company Number: US-SHIRE-US201917242

PATIENT
  Age: 56 Year
  Sex: Female

DRUGS (2)
  1. NATPARA (PARATHYROID HORMONE) [Suspect]
     Active Substance: PARATHYROID HORMONE
     Indication: HYPOPARATHYROIDISM
     Dosage: 50 MICROGRAM, 1X/DAY:QD
     Route: 065
     Dates: start: 20190503
  2. NATPARA (PARATHYROID HORMONE) [Suspect]
     Active Substance: PARATHYROID HORMONE
     Dosage: 75 MICROGRAM, 1X/DAY:QD
     Route: 065

REACTIONS (7)
  - Hypoparathyroidism [Unknown]
  - Tetany [Recovering/Resolving]
  - Headache [Recovered/Resolved]
  - Hypocalcaemia [Unknown]
  - Hypoaesthesia [Recovering/Resolving]
  - Inappropriate schedule of product administration [Unknown]
  - Recalled product [Unknown]

NARRATIVE: CASE EVENT DATE: 20190513
